FAERS Safety Report 4604951-4 (Version None)
Quarter: 2005Q1

REPORT INFORMATION
  Report Type: 
  Country: None (occurrence: None)
  Receive Date: 20050311
  Receipt Date: 20050308
  Transmission Date: 20050727
  Serious: Yes (Hospitalization)
  Sender: FDA-Public Use
  Company Number: US-JNJFOC-20050104841

PATIENT
  Sex: Female
  Weight: 56.7 kg

DRUGS (3)
  1. DURAGESIC-100 [Suspect]
     Route: 062
  2. PERCOCET [Concomitant]
     Route: 049
  3. PERCOCET [Concomitant]
     Dosage: 10/650 FOUR TIMES A DAY AS NEEDED
     Route: 049

REACTIONS (2)
  - ARTERIAL BYPASS OPERATION [None]
  - SMALL INTESTINAL RESECTION [None]
